FAERS Safety Report 8386982-4 (Version None)
Quarter: 2012Q2

REPORT INFORMATION
  Report Type: 
  Country: None (occurrence: None)
  Receive Date: 20120525
  Receipt Date: 20120517
  Transmission Date: 20120825
  Serious: Yes (Hospitalization)
  Sender: FDA-Public Use
  Company Number: US-JNJFOC-20120514939

PATIENT
  Sex: Male
  Weight: 88.45 kg

DRUGS (4)
  1. SIMVASTATIN [Concomitant]
     Indication: BLOOD CHOLESTEROL INCREASED
     Route: 065
     Dates: start: 20070101
  2. ELMIRON [Suspect]
     Indication: CYSTITIS HAEMORRHAGIC
     Route: 048
     Dates: start: 20020101
  3. CELEXA [Concomitant]
     Indication: DEPRESSION
     Route: 065
     Dates: start: 20020101
  4. ELMIRON [Suspect]
     Route: 048
     Dates: start: 20020101, end: 20020101

REACTIONS (6)
  - CYSTITIS [None]
  - URINARY BLADDER HAEMORRHAGE [None]
  - BLADDER CATHETERISATION [None]
  - BLADDER SPASM [None]
  - BLOOD CHOLESTEROL INCREASED [None]
  - URETHRAL OBSTRUCTION [None]
